FAERS Safety Report 25647363 (Version 1)
Quarter: 2025Q3

REPORT INFORMATION
  Report Type: Spontaneous
  Country: US (occurrence: US)
  Receive Date: 20250806
  Receipt Date: 20250806
  Transmission Date: 20251020
  Serious: Yes (Other)
  Sender: STRIDES
  Company Number: US-STRIDES PHARMA UK LTD.-2025SP009589

PATIENT
  Age: 63 Year
  Sex: Male

DRUGS (7)
  1. MYCOPHENOLATE MOFETIL [Suspect]
     Active Substance: MYCOPHENOLATE MOFETIL
     Indication: Pemphigoid
     Route: 065
  2. PREDNISOLONE [Suspect]
     Active Substance: PREDNISOLONE
     Indication: Pemphigoid
     Route: 065
  3. TRIAMCINOLONE ACETONIDE [Suspect]
     Active Substance: TRIAMCINOLONE ACETONIDE
     Indication: Pemphigoid
     Route: 065
  4. DOXYCYCLINE [Suspect]
     Active Substance: DOXYCYCLINE
     Indication: Pemphigoid
     Route: 065
  5. IMIQUIMOD [Concomitant]
     Active Substance: IMIQUIMOD
     Indication: Kaposi sarcoma inflammatory cytokine syndrome
     Route: 065
  6. NITROGEN [Concomitant]
     Active Substance: NITROGEN
     Indication: Cryotherapy
     Route: 065
  7. CLOBETASOL PROPIONATE [Concomitant]
     Active Substance: CLOBETASOL PROPIONATE
     Indication: Kaposi sarcoma inflammatory cytokine syndrome
     Route: 061

REACTIONS (2)
  - Disease recurrence [Recovered/Resolved]
  - Off label use [Unknown]
